FAERS Safety Report 21920500 (Version 1)
Quarter: 2023Q1

REPORT INFORMATION
  Report Type: Spontaneous
  Country: US (occurrence: None)
  Receive Date: 20230126
  Receipt Date: 20230126
  Transmission Date: 20230417
  Serious: Yes (Other)
  Sender: FDA-Public Use
  Company Number: None

PATIENT
  Age: 65 Year
  Sex: Female

DRUGS (1)
  1. POMALYST [Suspect]
     Active Substance: POMALIDOMIDE
     Indication: Plasma cell myeloma
     Dosage: FREQUENCY : DAILY;?
     Route: 048
     Dates: start: 20230118, end: 20230125

REACTIONS (7)
  - Erythema [None]
  - Swelling of eyelid [None]
  - Pruritus [None]
  - Rash macular [None]
  - Rash [None]
  - Skin discolouration [None]
  - Therapy cessation [None]

NARRATIVE: CASE EVENT DATE: 20230126
